FAERS Safety Report 7707577-9 (Version None)
Quarter: 2011Q3

REPORT INFORMATION
  Report Type: 
  Country: None (occurrence: None)
  Receive Date: 20110824
  Receipt Date: 20110815
  Transmission Date: 20111222
  Serious: Yes (Hospitalization)
  Sender: FDA-Public Use
  Company Number: US-MUTUAL PHARMACEUTICAL COMPANY, INC.-BCTM20110047

PATIENT
  Sex: Female
  Weight: 64.014 kg

DRUGS (24)
  1. NORVASC [Suspect]
     Route: 065
     Dates: start: 19970101
  2. FUROSEMIDE [Suspect]
     Indication: PRODUCT USED FOR UNKNOWN INDICATION
     Route: 065
  3. REGLAN [Suspect]
     Indication: PRODUCT USED FOR UNKNOWN INDICATION
     Route: 065
  4. HYDROCHLOROTHIAZIDE [Suspect]
     Indication: PRODUCT USED FOR UNKNOWN INDICATION
     Route: 065
  5. ATACAND [Suspect]
     Indication: PRODUCT USED FOR UNKNOWN INDICATION
     Route: 065
  6. NEBIVOLOL HCL [Suspect]
     Indication: PRODUCT USED FOR UNKNOWN INDICATION
     Route: 065
  7. LIDOCAINE HCL [Suspect]
     Indication: NAIL OPERATION
     Route: 065
     Dates: start: 20100513, end: 20100513
  8. LEVOTHYROXINE SODIUM [Concomitant]
     Indication: PRODUCT USED FOR UNKNOWN INDICATION
     Route: 065
  9. CLONIDINE [Concomitant]
     Indication: HYPERTENSION
     Route: 065
  10. NORVASC [Suspect]
     Indication: HYPERTENSION
     Route: 065
     Dates: start: 19950101
  11. VALSARTAN [Suspect]
     Indication: PRODUCT USED FOR UNKNOWN INDICATION
     Route: 065
  12. XANAX [Suspect]
     Indication: PRODUCT USED FOR UNKNOWN INDICATION
     Route: 065
  13. BENICAR [Suspect]
     Indication: HYPERTENSION
     Route: 065
     Dates: end: 20070101
  14. AVAPRO [Suspect]
     Indication: HYPERTENSION
     Route: 065
  15. LOSARTAN POTASSIUM [Suspect]
     Indication: PRODUCT USED FOR UNKNOWN INDICATION
     Route: 065
  16. CIPROFLOXACIN [Suspect]
     Indication: PRODUCT USED FOR UNKNOWN INDICATION
     Route: 065
  17. BACTRIM [Suspect]
     Indication: PRODUCT USED FOR UNKNOWN INDICATION
     Route: 065
  18. NORVASC [Suspect]
     Route: 065
     Dates: start: 20100101
  19. LISINOPRIL [Suspect]
     Indication: PRODUCT USED FOR UNKNOWN INDICATION
     Route: 065
  20. CARDIZEM SR [Suspect]
     Indication: PRODUCT USED FOR UNKNOWN INDICATION
     Route: 065
  21. LEVAQUIN [Suspect]
     Indication: PRODUCT USED FOR UNKNOWN INDICATION
     Route: 065
  22. DEPAKOTE [Suspect]
     Indication: CONVULSION
     Route: 065
     Dates: start: 19960101
  23. DILANTIN [Suspect]
     Indication: PRODUCT USED FOR UNKNOWN INDICATION
     Route: 065
     Dates: start: 19960101
  24. MACROBID [Suspect]
     Indication: PRODUCT USED FOR UNKNOWN INDICATION
     Route: 065

REACTIONS (15)
  - GASTRIC DISORDER [None]
  - TOE OPERATION [None]
  - FULL BLOOD COUNT DECREASED [None]
  - LOSS OF CONSCIOUSNESS [None]
  - GENERALISED ERYTHEMA [None]
  - DIZZINESS [None]
  - INGROWING NAIL [None]
  - BLOOD PRESSURE INCREASED [None]
  - ARTERIOGRAM CORONARY ABNORMAL [None]
  - BURNING SENSATION [None]
  - HEADACHE [None]
  - PALPITATIONS [None]
  - WEIGHT DECREASED [None]
  - CHOLECYSTECTOMY [None]
  - CYSTITIS [None]
